FAERS Safety Report 10786080 (Version 1)
Quarter: 2015Q1

REPORT INFORMATION
  Report Type: Spontaneous
  Country: US (occurrence: None)
  Receive Date: 20150210
  Receipt Date: 20150210
  Transmission Date: 20150721
  Serious: No
  Sender: FDA-Public Use
  Company Number: None

PATIENT
  Age: 16 Year
  Sex: Female
  Weight: 69.1 kg

DRUGS (1)
  1. HALOPERIDOL. [Suspect]
     Active Substance: HALOPERIDOL
     Indication: PSYCHOTIC DISORDER
     Dosage: HALOPROERIDIOL 5 MG FIRST DOSE ORAL
     Route: 048
     Dates: start: 20141219

REACTIONS (1)
  - Dystonia [None]

NARRATIVE: CASE EVENT DATE: 20141229
